FAERS Safety Report 5616576-2 (Version None)
Quarter: 2008Q1

REPORT INFORMATION
  Report Type: 
  Country: None (occurrence: None)
  Receive Date: 20080207
  Receipt Date: 20070806
  Transmission Date: 20080703
  Serious: No
  Sender: FDA-Public Use
  Company Number: A0668397A

PATIENT
  Age: 23 Year
  Sex: Female

DRUGS (1)
  1. PAXIL CR [Suspect]
     Indication: DEPRESSION
     Dosage: 12.5MG PER DAY
     Route: 048
     Dates: start: 20070801, end: 20070806

REACTIONS (9)
  - DRUG EXPOSURE VIA BREAST MILK [None]
  - DYSARTHRIA [None]
  - FATIGUE [None]
  - FEELING ABNORMAL [None]
  - HEADACHE [None]
  - LETHARGY [None]
  - MENTAL IMPAIRMENT [None]
  - PARAESTHESIA [None]
  - SOMNOLENCE [None]
